FAERS Safety Report 6022433-2 (Version None)
Quarter: 2008Q4

REPORT INFORMATION
  Report Type: 
  Country: None (occurrence: None)
  Receive Date: 20081221
  Receipt Date: 20081221
  Transmission Date: 20090506
  Serious: Yes (Hospitalization)
  Sender: FDA-Public Use
  Company Number: None

PATIENT
  Age: 66 Year
  Sex: Female
  Weight: 63.5036 kg

DRUGS (1)
  1. BONIVA [Suspect]
     Indication: OSTEOPENIA
     Dosage: 150 MG ONCE/MONTH PO
     Route: 048
     Dates: start: 20071201, end: 20081001

REACTIONS (5)
  - ABDOMINAL PAIN UPPER [None]
  - BACK PAIN [None]
  - DIARRHOEA [None]
  - DYSPEPSIA [None]
  - VOMITING [None]
